FAERS Safety Report 5883665-7 (Version None)
Quarter: 2008Q3

REPORT INFORMATION
  Report Type: 
  Country: None (occurrence: None)
  Receive Date: 20080915
  Receipt Date: 20080908
  Transmission Date: 20090109
  Serious: Yes (Death)
  Sender: FDA-Public Use
  Company Number: US-BAYER-200829538NA

PATIENT
  Age: 55 Year
  Sex: Male

DRUGS (4)
  1. MAGNEVIST [Suspect]
     Indication: NUCLEAR MAGNETIC RESONANCE IMAGING
     Dates: start: 20010529, end: 20010529
  2. OMNISCAN [Suspect]
     Indication: NUCLEAR MAGNETIC RESONANCE IMAGING
     Dates: start: 20060701, end: 20060701
  3. OMNISCAN [Suspect]
     Dates: start: 20060810, end: 20060810
  4. OMNISCAN [Suspect]
     Dates: start: 20060913, end: 20060913

REACTIONS (13)
  - ANHEDONIA [None]
  - ANXIETY [None]
  - DRY SKIN [None]
  - INJURY [None]
  - JOINT RANGE OF MOTION DECREASED [None]
  - NEPHROGENIC SYSTEMIC FIBROSIS [None]
  - PAIN [None]
  - PRURITUS [None]
  - RENAL FAILURE CHRONIC [None]
  - SCAR [None]
  - SKIN EXFOLIATION [None]
  - SKIN HYPERTROPHY [None]
  - SWELLING [None]
